FAERS Safety Report 21189751 (Version 1)
Quarter: 2022Q3

REPORT INFORMATION
  Report Type: Spontaneous
  Country: US (occurrence: None)
  Receive Date: 20220808
  Receipt Date: 20220808
  Transmission Date: 20221027
  Serious: Yes (Other)
  Sender: FDA-Public Use
  Company Number: None

PATIENT
  Sex: Female
  Weight: 117.9 kg

DRUGS (13)
  1. TREMFYA [Suspect]
     Active Substance: GUSELKUMAB
     Indication: Psoriasis
     Dosage: OTHER FREQUENCY : Q. 8 WEEKS;?
     Route: 058
     Dates: start: 20211011
  2. TREMFYA [Suspect]
     Active Substance: GUSELKUMAB
     Indication: Psoriatic arthropathy
  3. buspirone 10 mg tab [Concomitant]
  4. atorvastatin 10 mg tab [Concomitant]
  5. ferrous sulfate 325 mg tab [Concomitant]
  6. DULOXETINE [Concomitant]
     Active Substance: DULOXETINE
  7. tizanidine 4 mg tab [Concomitant]
  8. allopurinol 100 mg tab [Concomitant]
  9. latanoprost opththalmic solution [Concomitant]
  10. halobetasol external cream [Concomitant]
  11. sodium fluoride 5000 Plus Dental Cream [Concomitant]
  12. colchicine 0.6 mg tab [Concomitant]
  13. MODERNA COVID-19 VACCINE [Suspect]
     Active Substance: ELASOMERAN

REACTIONS (5)
  - Gout [None]
  - Bedridden [None]
  - Psoriasis [None]
  - Psoriatic arthropathy [None]
  - Walking aid user [None]
